FAERS Safety Report 9360855 (Version 2)
Quarter: 2013Q3

REPORT INFORMATION
  Report Type: Spontaneous
  Country: IT (occurrence: None)
  Receive Date: 20130618
  Receipt Date: 20130710
  Transmission Date: 20140515
  Serious: Yes (Death)
  Sender: FDA-Public Use
  Company Number: DKLU1091779

PATIENT
  Sex: 0

DRUGS (2)
  1. COSMEGEN [Suspect]
     Indication: NEPHROBLASTOMA
  2. VINCRISTINE [Suspect]
     Indication: NEPHROBLASTOMA

REACTIONS (1)
  - Unevaluable event [None]
